FAERS Safety Report 13321371 (Version 5)
Quarter: 2018Q4

REPORT INFORMATION
  Report Type: Spontaneous
  Country: US (occurrence: US)
  Receive Date: 20170309
  Receipt Date: 20181003
  Transmission Date: 20190204
  Serious: Yes (Congenital Anomaly, Other)
  Sender: FDA-Public Use
  Company Number: PHEH2017US006476

PATIENT
  Sex: Female

DRUGS (2)
  1. ZOFRAN [Suspect]
     Active Substance: ONDANSETRON HYDROCHLORIDE
     Indication: FOETAL EXPOSURE DURING PREGNANCY
     Route: 064
  2. ZOFRAN [Suspect]
     Active Substance: ONDANSETRON HYDROCHLORIDE
     Indication: FOETAL EXPOSURE DURING PREGNANCY
     Route: 064

REACTIONS (45)
  - Kidney infection [Unknown]
  - Conjunctivitis [Unknown]
  - Astigmatism [Unknown]
  - Rash [Unknown]
  - Amblyopia [Unknown]
  - Dysmenorrhoea [Unknown]
  - Cleft palate [Unknown]
  - Micrognathia [Unknown]
  - Dysuria [Unknown]
  - Haemorrhoids [Unknown]
  - Rhinitis allergic [Unknown]
  - Cleft lip [Unknown]
  - Pertussis [Unknown]
  - Coloboma [Unknown]
  - Pharyngitis [Unknown]
  - Nose deformity [Unknown]
  - Malocclusion [Unknown]
  - Dyspnoea [Unknown]
  - Pyrexia [Unknown]
  - Cholecystitis [Unknown]
  - Foetal exposure during pregnancy [Unknown]
  - Injury [Unknown]
  - Oropharyngeal pain [Unknown]
  - Viral infection [Unknown]
  - Migraine [Unknown]
  - Cholelithiasis [Unknown]
  - Headache [Unknown]
  - Infectious mononucleosis [Unknown]
  - Acute sinusitis [Unknown]
  - Cough [Unknown]
  - Bronchitis [Unknown]
  - Tonsillitis [Unknown]
  - Sleep disorder [Unknown]
  - Ear pain [Unknown]
  - Ear infection [Unknown]
  - Otitis media [Unknown]
  - Speech disorder [Unknown]
  - Hypermetropia [Unknown]
  - Dizziness [Unknown]
  - Chest pain [Unknown]
  - Ovarian cyst [Unknown]
  - Syncope [Unknown]
  - Vision blurred [Unknown]
  - Strabismus [Unknown]
  - Urinary tract infection [Unknown]
